FAERS Safety Report 5763125-4 (Version None)
Quarter: 2008Q2

REPORT INFORMATION
  Report Type: 
  Country: None (occurrence: None)
  Receive Date: 20080609
  Receipt Date: 20080527
  Transmission Date: 20081010
  Serious: Yes (Other)
  Sender: FDA-Public Use
  Company Number: US-ELI_LILLY_AND_COMPANY-US200805001674

PATIENT
  Sex: Female
  Weight: 55.782 kg

DRUGS (4)
  1. EVISTA [Suspect]
     Indication: OSTEOPOROSIS
     Dosage: 60 MG, DAILY (1/D)
     Dates: start: 20030408, end: 20080509
  2. DILTIAZEM [Concomitant]
     Dosage: 180 MG, 2/D
  3. METFORMIN HCL [Concomitant]
     Dosage: 500 MG, 3/D
  4. LIPITOR [Concomitant]
     Dosage: 10 MG, DAILY (1/D)

REACTIONS (1)
  - BREAST CANCER [None]
